FAERS Safety Report 9557471 (Version 1)
Quarter: 2013Q3

REPORT INFORMATION
  Report Type: Spontaneous
  Country: US (occurrence: None)
  Receive Date: 20130726
  Receipt Date: 20130726
  Transmission Date: 20140515
  Serious: Yes (Hospitalization)
  Sender: FDA-Public Use
  Company Number: UTC-019832

PATIENT
  Age: 44 Year
  Sex: Female
  Weight: 90.5 kg

DRUGS (2)
  1. REMODULIN [Suspect]
     Indication: SYSTEMIC LUPUS ERYTHEMATOSUS
     Dosage: 1 IN 1 MIN
     Route: 042
  2. ADCIRCA (TADALAFIL) [Concomitant]

REACTIONS (1)
  - Device related infection [None]
